FAERS Safety Report 7186825-0 (Version None)
Quarter: 2010Q4

REPORT INFORMATION
  Report Type: 
  Country: None (occurrence: None)
  Receive Date: 20101222
  Receipt Date: 20101221
  Transmission Date: 20110411
  Serious: Yes (Death)
  Sender: FDA-Public Use
  Company Number: A0901101A

PATIENT
  Sex: Male

DRUGS (1)
  1. SORIATANE [Suspect]
     Dates: start: 20100910, end: 20101001

REACTIONS (1)
  - DEATH [None]
